FAERS Safety Report 18755617 (Version 1)
Quarter: 2021Q1

REPORT INFORMATION
  Report Type: Spontaneous
  Country: US (occurrence: US)
  Receive Date: 20210119
  Receipt Date: 20210119
  Transmission Date: 20210419
  Serious: No
  Sender: FDA-Public Use
  Company Number: US-TAKEDA-2021TUS002753

PATIENT
  Sex: Female
  Weight: 87.99 kg

DRUGS (11)
  1. MIRAPEX [Concomitant]
     Active Substance: PRAMIPEXOLE DIHYDROCHLORIDE
  2. METFORMIN [Concomitant]
     Active Substance: METFORMIN HYDROCHLORIDE
  3. BOTOX [Concomitant]
     Active Substance: ONABOTULINUMTOXINA
  4. VITAMIN D3 [Concomitant]
     Active Substance: CHOLECALCIFEROL
  5. GAMMAGARD LIQUID [Suspect]
     Active Substance: HUMAN IMMUNOGLOBULIN G
     Indication: HYPOGAMMAGLOBULINAEMIA
     Dosage: 60 GRAM, Q5WEEKS
     Route: 042
     Dates: start: 20200710
  6. PROTONIX [OMEPRAZOLE] [Concomitant]
     Active Substance: OMEPRAZOLE
  7. ATENOLOL. [Concomitant]
     Active Substance: ATENOLOL
  8. CRESTOR [Concomitant]
     Active Substance: ROSUVASTATIN CALCIUM
  9. AMLODIPINE [Concomitant]
     Active Substance: AMLODIPINE BESYLATE
  10. ZYRTEC [Concomitant]
     Active Substance: CETIRIZINE HYDROCHLORIDE
  11. TRAMADOL. [Concomitant]
     Active Substance: TRAMADOL

REACTIONS (1)
  - Tooth abscess [Unknown]
